FAERS Safety Report 5787290-8 (Version None)
Quarter: 2008Q2

REPORT INFORMATION
  Report Type: 
  Country: None (occurrence: None)
  Receive Date: 20080625
  Receipt Date: 20070912
  Transmission Date: 20081010
  Serious: No
  Sender: FDA-Public Use
  Company Number: US-ASTRAZENECA-2007UW20593

PATIENT
  Age: 14 Month
  Sex: Male
  Weight: 9.5 kg

DRUGS (2)
  1. PULMICORT RESPULES [Suspect]
     Indication: ASTHMA
     Dosage: 0.25 MG/DL
     Route: 055
     Dates: start: 20070801
  2. ZYRTEC [Concomitant]

REACTIONS (1)
  - SWELLING [None]
